FAERS Safety Report 5163503-0 (Version None)
Quarter: 2006Q4

REPORT INFORMATION
  Report Type: 
  Country: None (occurrence: None)
  Receive Date: 20061128
  Receipt Date: 20061128
  Transmission Date: 20070319
  Serious: Yes (Other)
  Sender: FDA-Public Use
  Company Number: None

PATIENT
  Sex: Male
  Weight: 23.587 kg

DRUGS (1)
  1. FLOVENT [Suspect]

REACTIONS (2)
  - DRUG INEFFECTIVE [None]
  - NIGHTMARE [None]
